FAERS Safety Report 10439411 (Version 1)
Quarter: 2014Q3

REPORT INFORMATION
  Report Type: Spontaneous
  Country: GB (occurrence: None)
  Receive Date: 20140905
  Receipt Date: 20140905
  Transmission Date: 20150326
  Serious: Yes (Death)
  Sender: FDA-Public Use
  Company Number: FK201403538

PATIENT
  Age: 69 Year
  Sex: Female

DRUGS (2)
  1. LIDOCAINE. [Suspect]
     Active Substance: LIDOCAINE
     Indication: LOCAL ANAESTHESIA
     Dosage: 70 MG, 1MG/KG
     Route: 042
  2. LIDOCAINE. [Suspect]
     Active Substance: LIDOCAINE
     Indication: ANAESTHESIA
     Dosage: 70 MG, 1MG/KG
     Route: 042

REACTIONS (1)
  - Cardiac arrest [None]
